FAERS Safety Report 6166928-X (Version None)
Quarter: 2009Q2

REPORT INFORMATION
  Report Type: 
  Country: None (occurrence: None)
  Receive Date: 20090424
  Receipt Date: 20090417
  Transmission Date: 20091009
  Serious: Yes (Hospitalization)
  Sender: FDA-Public Use
  Company Number: ID-AVENTIS-200914095GDDC

PATIENT
  Sex: Male
  Weight: 66 kg

DRUGS (4)
  1. LANTUS [Suspect]
     Indication: DIABETES MELLITUS
     Route: 058
     Dates: start: 20081120
  2. SIMVASTATIN [Concomitant]
  3. IRBESARTAN [Concomitant]
  4. ACETYLSALICYLIC ACID [Concomitant]

REACTIONS (1)
  - DYSPHASIA [None]
